FAERS Safety Report 24575080 (Version 1)
Quarter: 2024Q4

REPORT INFORMATION
  Report Type: Spontaneous
  Country: US (occurrence: US)
  Receive Date: 20241104
  Receipt Date: 20241104
  Transmission Date: 20250114
  Serious: No
  Sender: ROCHE
  Company Number: US-ROCHE-10000120022

PATIENT
  Age: 8 Year
  Sex: Male

DRUGS (7)
  1. BEVACIZUMAB [Suspect]
     Active Substance: BEVACIZUMAB
     Indication: Glaucoma
     Route: 050
  2. ACYCLOVIR [Concomitant]
     Active Substance: ACYCLOVIR
  3. IOPIDINE [Concomitant]
     Active Substance: APRACLONIDINE HYDROCHLORIDE
  4. TIMOLOL [Concomitant]
     Active Substance: TIMOLOL\TIMOLOL MALEATE
  5. LATANOPROST [Concomitant]
     Active Substance: LATANOPROST
     Dosage: ONCE PER NIGHT
  6. MANNITOL [Concomitant]
     Active Substance: MANNITOL
  7. ACETAZOLAMIDE [Concomitant]
     Active Substance: ACETAZOLAMIDE
     Route: 048

REACTIONS (3)
  - Off label use [Unknown]
  - Off label use [Unknown]
  - No adverse event [Unknown]
